FAERS Safety Report 5596348-8 (Version None)
Quarter: 2008Q1

REPORT INFORMATION
  Report Type: 
  Country: None (occurrence: None)
  Receive Date: 20080118
  Receipt Date: 20080115
  Transmission Date: 20080703
  Serious: Yes (Disabling, Other)
  Sender: FDA-Public Use
  Company Number: US-MERCK-0801USA03125

PATIENT
  Age: 74 Year
  Sex: Male

DRUGS (4)
  1. SIMVASTATIN [Suspect]
     Indication: STENT PLACEMENT
     Route: 048
     Dates: start: 20070901, end: 20080114
  2. PLAVIX [Concomitant]
     Route: 065
     Dates: start: 20070901
  3. ASPIRIN [Concomitant]
     Route: 065
  4. ZEBETA [Concomitant]
     Route: 065

REACTIONS (1)
  - HAEMOGLOBIN DECREASED [None]
